FAERS Safety Report 14081418 (Version 2)
Quarter: 2017Q4

REPORT INFORMATION
  Report Type: Spontaneous
  Country: GB (occurrence: GB)
  Receive Date: 20171013
  Receipt Date: 20171024
  Transmission Date: 20180321
  Serious: Yes (Other)
  Sender: FDA-Public Use
  Company Number: GB-APOTEX-2017AP020010

PATIENT
  Sex: Male

DRUGS (2)
  1. THIORIDAZINE [Suspect]
     Active Substance: THIORIDAZINE
     Indication: POST-TRAUMATIC STRESS DISORDER
     Dosage: UNK
     Route: 065
     Dates: start: 1996, end: 1998
  2. PAROXETINE. [Suspect]
     Active Substance: PAROXETINE
     Indication: POST-TRAUMATIC STRESS DISORDER
     Dosage: UNK
     Route: 065
     Dates: start: 1996, end: 1998

REACTIONS (3)
  - General physical health deterioration [Unknown]
  - Memory impairment [Unknown]
  - Niemann-Pick disease [Unknown]
